FAERS Safety Report 5245160-8 (Version None)
Quarter: 2007Q1

REPORT INFORMATION
  Report Type: 
  Country: None (occurrence: None)
  Receive Date: 20070223
  Receipt Date: 20070212
  Transmission Date: 20070707
  Serious: Yes (Hospitalization, Other)
  Sender: FDA-Public Use
  Company Number: PHEH2007US00854

PATIENT
  Sex: Female

DRUGS (4)
  1. MIACALCIN [Suspect]
     Indication: OSTEOPOROSIS
     Dosage: UNK, QD
     Dates: start: 20030101, end: 20060401
  2. MIACALCIN [Suspect]
     Dosage: UNK, QD
     Dates: start: 20061001
  3. MIACALCIN [Suspect]
     Dates: start: 20061110
  4. ACTONEL [Suspect]
     Indication: OSTEOPOROSIS
     Dates: start: 20050901, end: 20060401

REACTIONS (5)
  - MUSCLE CONTRACTURE [None]
  - MYALGIA [None]
  - NASAL DISCOMFORT [None]
  - NASAL DRYNESS [None]
  - NASAL ULCER [None]
